FAERS Safety Report 10273117 (Version 1)
Quarter: 2014Q1

REPORT INFORMATION
  Report Type: Spontaneous
  Country: US (occurrence: None)
  Receive Date: 20140306
  Receipt Date: 20140306
  Transmission Date: 20141002
  Serious: Yes (Other)
  Sender: FDA-Public Use
  Company Number: 163-21880-13083479

PATIENT
  Age: 65 Year
  Sex: Male

DRUGS (5)
  1. REVLIMID (LENALIDOMIDE) (CAPSULES) [Suspect]
     Indication: PLASMA CELL MYELOMA
     Route: 048
     Dates: start: 201303
  2. CARFILZOMIB (CARFILZOMIB) (UNKNOWN) [Concomitant]
  3. CYCLOPHOSPHAMIDE (CYCLOPHOSPHAMIDE) (UNKNOWN) (CYCLOPHOSAPHAMIDE) [Concomitant]
  4. DEXAMETHASONE (DEXAMETHASONE) (UNKNOWN) [Concomitant]
  5. VELCADE (BORTEZOMIB) (UNKNOWN) [Concomitant]

REACTIONS (5)
  - Hypersensitivity [None]
  - Periorbital oedema [None]
  - Skin reaction [None]
  - Rash pruritic [None]
  - Anaemia [None]
